FAERS Safety Report 6308652-6 (Version None)
Quarter: 2009Q3

REPORT INFORMATION
  Report Type: 
  Country: None (occurrence: None)
  Receive Date: 20090811
  Receipt Date: 20090611
  Transmission Date: 20100115
  Serious: No
  Sender: FDA-Public Use
  Company Number: 1000006756

PATIENT
  Age: 58 Year
  Sex: Female

DRUGS (6)
  1. SAVELLA [Suspect]
     Indication: FIBROMYALGIA
     Dosage: 12.5 MG (12.5 MG, 1 IN 1 D), ORAL; 25 MG (12.5 MG, 2 IN 1 D), ORAL
     Route: 048
     Dates: start: 20090610, end: 20090610
  2. SAVELLA [Suspect]
     Indication: FIBROMYALGIA
     Dosage: 12.5 MG (12.5 MG, 1 IN 1 D), ORAL; 25 MG (12.5 MG, 2 IN 1 D), ORAL
     Route: 048
     Dates: start: 20090611
  3. ZOCOR [Concomitant]
  4. PREMARIN [Concomitant]
  5. ACETAMINOPHEN [Concomitant]
  6. MOBIC [Concomitant]

REACTIONS (4)
  - CHEST DISCOMFORT [None]
  - FLUSHING [None]
  - PAINFUL RESPIRATION [None]
  - PALPITATIONS [None]
